FAERS Safety Report 7339053-X (Version None)
Quarter: 2011Q1

REPORT INFORMATION
  Report Type: 
  Country: None (occurrence: None)
  Receive Date: 20110308
  Receipt Date: 20110223
  Transmission Date: 20110831
  Serious: Yes (Hospitalization)
  Sender: FDA-Public Use
  Company Number: FR-ELI_LILLY_AND_COMPANY-FR201102007504

PATIENT
  Sex: Female

DRUGS (7)
  1. CYMBALTA [Suspect]
     Dosage: 60 MG, DAILY (1/D)
     Route: 048
     Dates: start: 20091201, end: 20100505
  2. ALCOHOL [Concomitant]
  3. TERCIAN [Concomitant]
     Dosage: 1 D/F, DAILY (1/D)
     Route: 048
     Dates: start: 20070101
  4. IMOVANE [Concomitant]
     Dosage: 7.5 MG, DAILY (1/D)
     Route: 048
  5. SERESTA [Concomitant]
     Dosage: 50 MG, 4/D
     Route: 048
     Dates: start: 20060101
  6. LOXEN [Concomitant]
     Dosage: 20 MG, DAILY (1/D)
     Route: 048
  7. COVERSYL /FRA/ [Concomitant]
     Dosage: 2.5 MG, 2/D
     Route: 048

REACTIONS (9)
  - HYPERTENSION [None]
  - ARRHYTHMIA [None]
  - COMA [None]
  - HYPERHIDROSIS [None]
  - ALCOHOL POISONING [None]
  - MALAISE [None]
  - CHEST PAIN [None]
  - ATRIAL FIBRILLATION [None]
  - BLOOD PRESSURE SYSTOLIC INCREASED [None]
